FAERS Safety Report 9412866 (Version 1)
Quarter: 2013Q3

REPORT INFORMATION
  Report Type: Spontaneous
  Country: SE (occurrence: SE)
  Receive Date: 20130722
  Receipt Date: 20130722
  Transmission Date: 20140515
  Serious: Yes (Hospitalization)
  Sender: FDA-Public Use
  Company Number: PHHY2013SE076389

PATIENT
  Age: 4 Year
  Sex: Female

DRUGS (30)
  1. PACLITAXEL [Suspect]
     Dates: start: 20130220
  2. PACLITAXEL [Suspect]
     Dates: start: 20130308
  3. MINIDERM//GLYCEROL [Concomitant]
  4. KEPPRA [Concomitant]
  5. MOVICOL [Concomitant]
  6. PIPERACILLIN/TAZOBACTAM FRESENIUS KABI [Concomitant]
  7. ONDANSETRON ACCORD [Concomitant]
  8. VEDROP [Concomitant]
  9. D VITAMIN OLJA [Concomitant]
  10. ACTILYSE [Concomitant]
  11. INOTYOL [Concomitant]
  12. ALVEDON [Concomitant]
  13. BETAPRED [Concomitant]
  14. SOLU-CORTEF [Concomitant]
  15. TAVEGYL [Concomitant]
  16. ADRENALIN [Concomitant]
  17. RIFADIN [Concomitant]
  18. FURIX [Concomitant]
  19. HEPARIN LEO [Concomitant]
  20. MILDISON LIPID [Concomitant]
  21. ZANTAC [Concomitant]
  22. KONAKION [Concomitant]
  23. ELOCON [Concomitant]
  24. NATRIUM CHLORIDE [Concomitant]
  25. EMLA [Concomitant]
  26. DIAZEPAM ^DESITIN^ [Concomitant]
  27. ZOFRAN [Concomitant]
  28. URSOFALK [Concomitant]
  29. RETINOL [Concomitant]
  30. PROPRANOL HCL [Concomitant]

REACTIONS (2)
  - Genital ulceration [Not Recovered/Not Resolved]
  - Exfoliative rash [Not Recovered/Not Resolved]
